FAERS Safety Report 7155928-9 (Version None)
Quarter: 2010Q4

REPORT INFORMATION
  Report Type: 
  Country: None (occurrence: None)
  Receive Date: 20101214
  Receipt Date: 20101130
  Transmission Date: 20110411
  Serious: Yes (Other)
  Sender: FDA-Public Use
  Company Number: GB-RANBAXY-2010R1-39406

PATIENT
  Age: 40 Year
  Sex: Male

DRUGS (10)
  1. TOPIRAMATE [Suspect]
     Indication: EPILEPSY
     Dosage: 10 MG, QD
     Route: 048
     Dates: start: 20100201
  2. TOPIRAMATE [Suspect]
     Dosage: 50 MG, TID
     Route: 048
  3. TOPIRAMATE [Suspect]
     Dosage: 100 MG, BID
  4. TOPIRAMATE [Suspect]
     Dosage: 50 MG, BID
     Route: 065
  5. AMOXICILLIN [Concomitant]
     Indication: PRODUCT USED FOR UNKNOWN INDICATION
     Dosage: UNK
     Route: 065
     Dates: start: 20100226
  6. CITALOPRAM HYDROBROMIDE [Concomitant]
     Indication: DEPRESSION
     Dosage: 20 MG, QD
     Route: 065
     Dates: start: 20100812
  7. INFLUENZA VIRUS [Concomitant]
     Indication: PRODUCT USED FOR UNKNOWN INDICATION
     Dosage: UNK
     Route: 065
     Dates: start: 20011015
  8. LAMOTRIGINE [Concomitant]
     Indication: PRODUCT USED FOR UNKNOWN INDICATION
     Dosage: UNK
     Route: 065
     Dates: start: 20010925
  9. SOFRADEX [Concomitant]
     Indication: CHOLESTEATOMA
     Dosage: UNK
     Route: 065
     Dates: start: 20100902
  10. TOPIRAMATE [Concomitant]
     Indication: GENERALISED NON-CONVULSIVE EPILEPSY
     Dosage: 200 MG, QD
     Route: 065
     Dates: start: 20100707

REACTIONS (2)
  - EPILEPSY [None]
  - INCORRECT DOSE ADMINISTERED [None]
